FAERS Safety Report 8103039-8 (Version None)
Quarter: 2012Q1

REPORT INFORMATION
  Report Type: 
  Country: None (occurrence: None)
  Receive Date: 20120201
  Receipt Date: 20120201
  Transmission Date: 20120608
  Serious: Yes (Hospitalization)
  Sender: FDA-Public Use
  Company Number: None

PATIENT
  Age: 100 Year
  Sex: Female
  Weight: 78 kg

DRUGS (2)
  1. DABIGATRAN [Suspect]
     Indication: DEEP VEIN THROMBOSIS
     Dates: start: 20111224, end: 20120127
  2. DABIGATRAN [Suspect]
     Indication: ATRIAL FIBRILLATION
     Dates: start: 20111224, end: 20120127

REACTIONS (2)
  - COAGULOPATHY [None]
  - LOWER GASTROINTESTINAL HAEMORRHAGE [None]
